FAERS Safety Report 4348007-7 (Version None)
Quarter: 2004Q2

REPORT INFORMATION
  Report Type: 
  Country: None (occurrence: None)
  Receive Date: 20040422
  Receipt Date: 20040415
  Transmission Date: 20050107
  Serious: Yes (Other)
  Sender: FDA-Public Use
  Company Number: 200411145GDS

PATIENT

DRUGS (1)
  1. APROTININ [Suspect]
     Indication: OPERATIVE HAEMORRHAGE

REACTIONS (5)
  - HAEMORRHAGE [None]
  - HEPATIC ARTERY STENOSIS [None]
  - HEPATIC INFARCTION [None]
  - RENAL FAILURE [None]
  - THROMBOSIS [None]
